FAERS Safety Report 6334913-0 (Version None)
Quarter: 2009Q3

REPORT INFORMATION
  Report Type: 
  Country: None (occurrence: None)
  Receive Date: 20090831
  Receipt Date: 20090826
  Transmission Date: 20100115
  Serious: Yes (Hospitalization)
  Sender: FDA-Public Use
  Company Number: DE-BRISTOL-MYERS SQUIBB COMPANY-14565212

PATIENT
  Age: 63 Year
  Sex: Male
  Weight: 113 kg

DRUGS (3)
  1. CETUXIMAB [Suspect]
     Indication: NON-SMALL CELL LUNG CANCER
     Dosage: STRENGTH : 2 MG/ML,LAST DOSE:17MAR09,INTERRUPTED ON 23APR09
     Route: 042
     Dates: start: 20090310
  2. CARBOPLATIN [Suspect]
     Indication: NON-SMALL CELL LUNG CANCER STAGE IIIA
     Dosage: 1 DF = AREA UNDER CURVE (AUC) 5;DOSE REDUCED ON 23APR09
     Route: 042
     Dates: start: 20090311
  3. GEMZAR [Suspect]
     Indication: NON-SMALL CELL LUNG CANCER
     Dosage: LAST DOSE:17MAR09;23MAR09:DOSE REDUCED
     Route: 042
     Dates: start: 20090311

REACTIONS (2)
  - LEUKOPENIA [None]
  - THROMBOCYTOPENIA [None]
